FAERS Safety Report 20424212 (Version 1)
Quarter: 2022Q1

REPORT INFORMATION
  Report Type: Report from Study
  Country: US (occurrence: US)
  Receive Date: 20220203
  Receipt Date: 20220203
  Transmission Date: 20220423
  Serious: Yes (Hospitalization, Other)
  Sender: FDA-Public Use
  Company Number: US-EXELIXIS-CABO-21043866

PATIENT
  Sex: Male
  Weight: 95.583 kg

DRUGS (2)
  1. CABOMETYX [Suspect]
     Active Substance: CABOZANTINIB S-MALATE
     Indication: Renal cancer
     Dosage: 40 MG, QD
     Route: 048
     Dates: start: 20210811, end: 20210906
  2. CABOMETYX [Suspect]
     Active Substance: CABOZANTINIB S-MALATE
     Dosage: 40 MG, QD
     Route: 048
     Dates: start: 20210925

REACTIONS (9)
  - Diarrhoea [Recovering/Resolving]
  - Dehydration [Unknown]
  - Weight decreased [Recovering/Resolving]
  - Ageusia [Recovering/Resolving]
  - Feeling abnormal [Recovering/Resolving]
  - Anosmia [Recovering/Resolving]
  - Blood pressure increased [Recovering/Resolving]
  - Fatigue [Unknown]
  - Asthenia [Recovering/Resolving]
